FAERS Safety Report 6335968-X (Version None)
Quarter: 2009Q3

REPORT INFORMATION
  Report Type: 
  Country: None (occurrence: None)
  Receive Date: 20090901
  Receipt Date: 20090820
  Transmission Date: 20100115
  Serious: Yes (Other)
  Sender: FDA-Public Use
  Company Number: JP-ELI_LILLY_AND_COMPANY-JP200908006425

PATIENT
  Sex: Male

DRUGS (10)
  1. ALIMTA [Suspect]
     Indication: NON-SMALL CELL LUNG CANCER
     Dosage: 500 MG/M2, OTHER
     Route: 042
     Dates: start: 20090723
  2. PANVITAN [Concomitant]
     Dosage: 1 G, DAILY (1/D)
     Route: 048
     Dates: start: 20090701
  3. VITAMIN B-12 [Concomitant]
     Dosage: UNK, UNKNOWN
     Route: 065
  4. LAC B [Concomitant]
     Dosage: UNK, UNKNOWN
     Route: 048
  5. HALCION [Concomitant]
     Dosage: UNK, UNKNOWN
     Route: 048
  6. MUCODYNE [Concomitant]
     Dosage: UNK, UNKNOWN
     Route: 048
  7. MUCOSOLVAN [Concomitant]
     Dosage: UNK, DAILY (1/D)
     Route: 048
  8. MUCOSTA [Concomitant]
     Dosage: UNK, UNKNOWN
     Route: 048
  9. ALLELOCK [Concomitant]
     Dosage: UNK, DAILY (1/D)
     Route: 048
  10. LOXONIN [Concomitant]
     Dosage: UNK, UNKNOWN
     Route: 065

REACTIONS (2)
  - LARYNGEAL OEDEMA [None]
  - RASH [None]
